FAERS Safety Report 5379699-1 (Version None)
Quarter: 2007Q3

REPORT INFORMATION
  Report Type: 
  Country: None (occurrence: None)
  Receive Date: 20070706
  Receipt Date: 20070628
  Transmission Date: 20080115
  Serious: Yes (Other)
  Sender: FDA-Public Use
  Company Number: PHBS2005FI10700

PATIENT
  Sex: Male

DRUGS (1)
  1. ZOMETA [Suspect]
     Indication: OSTEOPOROSIS
     Dosage: ONE YEAR INTERVAL, RECEIVED TWICE

REACTIONS (3)
  - BONE PAIN [None]
  - DEPRESSION [None]
  - PAIN [None]
